FAERS Safety Report 5618630-8 (Version None)
Quarter: 2008Q1

REPORT INFORMATION
  Report Type: 
  Country: None (occurrence: None)
  Receive Date: 20080205
  Receipt Date: 20080205
  Transmission Date: 20080703
  Serious: Yes (Life-Threatening)
  Sender: FDA-Public Use
  Company Number: None

PATIENT
  Sex: Female
  Weight: 104.7809 kg

DRUGS (7)
  1. ACTOS [Suspect]
     Indication: DIABETES MELLITUS
     Dosage: 1 TABLET  DAILY  PO
     Route: 048
     Dates: start: 20020101, end: 20080131
  2. HUMULIN R [Concomitant]
  3. PAXIL [Concomitant]
  4. ASPIRIN [Concomitant]
  5. TENORETIC 100 [Concomitant]
  6. METFORMIN HCL [Concomitant]
  7. LOTREL [Concomitant]

REACTIONS (1)
  - CORONARY ARTERY DISEASE [None]
